FAERS Safety Report 7966872-9 (Version None)
Quarter: 2011Q4

REPORT INFORMATION
  Report Type: 
  Country: None (occurrence: None)
  Receive Date: 20111209
  Receipt Date: 20111209
  Transmission Date: 20120403
  Serious: Yes (Other)
  Sender: FDA-Public Use
  Company Number: US-PFIZER INC-2011297860

PATIENT
  Sex: Female
  Weight: 83.9 kg

DRUGS (3)
  1. LYRICA [Suspect]
     Indication: ARTHRALGIA
  2. ASPIRIN [Concomitant]
     Indication: PAIN
     Dosage: 81 MG, DAILY
  3. LYRICA [Suspect]
     Indication: FIBROMYALGIA
     Dosage: 50 MG, 2X/DAY
     Route: 048
     Dates: start: 20110929, end: 20111101

REACTIONS (9)
  - FEELING ABNORMAL [None]
  - DIZZINESS [None]
  - PAIN [None]
  - LETHARGY [None]
  - RASH [None]
  - DYSPNOEA [None]
  - THINKING ABNORMAL [None]
  - MALAISE [None]
  - VISION BLURRED [None]
